FAERS Safety Report 16085272 (Version 1)
Quarter: 2019Q1

REPORT INFORMATION
  Report Type: Spontaneous
  Country: US (occurrence: US)
  Receive Date: 20190318
  Receipt Date: 20190318
  Transmission Date: 20190418
  Serious: Yes (Other)
  Sender: FDA-Public Use
  Company Number: None

PATIENT
  Age: 50 Year
  Sex: Male
  Weight: 74.25 kg

DRUGS (8)
  1. PACEMAKER [Concomitant]
  2. LISINOPRIL. [Concomitant]
     Active Substance: LISINOPRIL
  3. ASPIRING [Concomitant]
     Active Substance: ASPIRIN
  4. HEADACHE RELIEF [Suspect]
     Active Substance: ACETAMINOPHEN\ASPIRIN\CAFFEINE
     Indication: HEADACHE
     Dosage: ?          QUANTITY:1 CAPSULE(S);?
     Route: 048
     Dates: start: 20190312, end: 20190312
  5. ACETIMINOPHEN [Concomitant]
  6. PANTAPROZOL [Concomitant]
  7. DAILY VITAMIN [Concomitant]
     Active Substance: VITAMINS
  8. MELATONIN [Concomitant]
     Active Substance: MELATONIN

REACTIONS (6)
  - Pruritus [None]
  - Product odour abnormal [None]
  - Product complaint [None]
  - Euphoric mood [None]
  - Paraesthesia [None]
  - Product taste abnormal [None]

NARRATIVE: CASE EVENT DATE: 20190312
